FAERS Safety Report 10346868 (Version 1)
Quarter: 2014Q3

REPORT INFORMATION
  Report Type: Spontaneous
  Country: US (occurrence: None)
  Receive Date: 20140725
  Receipt Date: 20140725
  Transmission Date: 20150326
  Serious: Yes (Other)
  Sender: FDA-Public Use
  Company Number: None

PATIENT
  Age: 80 Year
  Sex: Female
  Weight: 57.61 kg

DRUGS (1)
  1. LOTEMAX [Suspect]
     Active Substance: LOTEPREDNOL ETABONATE
     Indication: GLAUCOMA
     Dosage: INTO THE EYE
     Route: 047
     Dates: start: 20140408, end: 20140409

REACTIONS (3)
  - Pain [None]
  - Eye irritation [None]
  - Drug ineffective [None]

NARRATIVE: CASE EVENT DATE: 20140409
